FAERS Safety Report 10884042 (Version 1)
Quarter: 2015Q1

REPORT INFORMATION
  Report Type: Spontaneous
  Country: DE (occurrence: DE)
  Receive Date: 20150304
  Receipt Date: 20150304
  Transmission Date: 20150721
  Serious: Yes (Hospitalization)
  Sender: FDA-Public Use
  Company Number: DE-BRISTOL-MYERS SQUIBB COMPANY-21593413

PATIENT
  Age: 92 Year
  Sex: Male
  Weight: 50 kg

DRUGS (1)
  1. ELIQUIS [Suspect]
     Active Substance: APIXABAN
     Indication: CEREBROVASCULAR ACCIDENT PROPHYLAXIS
     Dosage: THERAPY DURATION: 3-4 MONTHS
     Route: 048
     Dates: start: 201408, end: 20141003

REACTIONS (5)
  - Fall [Recovered/Resolved]
  - Gait disturbance [Unknown]
  - Haematoma [Recovered/Resolved]
  - Skin abrasion [Recovered/Resolved]
  - Contusion [Recovered/Resolved]

NARRATIVE: CASE EVENT DATE: 20141002
